FAERS Safety Report 6743812-1 (Version None)
Quarter: 2010Q2

REPORT INFORMATION
  Report Type: 
  Country: None (occurrence: None)
  Receive Date: 20100527
  Receipt Date: 20100224
  Transmission Date: 20101027
  Serious: No
  Sender: FDA-Public Use
  Company Number: US-KINGPHARMUSA00001-K201000211

PATIENT
  Sex: Female
  Weight: 79.819 kg

DRUGS (4)
  1. FLECTOR [Suspect]
     Indication: BACK PAIN
     Dosage: 1 PATCH, PRN QHS
     Route: 061
     Dates: start: 20100101
  2. LISINOPRIL AND HYDROCHLOROTHIAZIDE [Concomitant]
     Indication: HYPERTENSION
     Dosage: 10/125 MG, QD
     Route: 048
     Dates: end: 20100202
  3. ENALAPRIL W/HYDROCHLOROTHIAZIDE [Concomitant]
     Indication: HYPERTENSION
     Dosage: 10/125 MG, QD
     Route: 048
     Dates: start: 20100202
  4. VITAMINS [Concomitant]
     Dosage: UNK

REACTIONS (1)
  - NASAL CONGESTION [None]
